FAERS Safety Report 5622626-X (Version None)
Quarter: 2008Q1

REPORT INFORMATION
  Report Type: 
  Country: None (occurrence: None)
  Receive Date: 20080211
  Receipt Date: 20080211
  Transmission Date: 20080703
  Serious: Yes (Hospitalization)
  Sender: FDA-Public Use
  Company Number: None

PATIENT
  Age: 59 Year
  Sex: Male

DRUGS (1)
  1. METHADONE HCL [Suspect]
     Indication: PAIN
     Dosage: 10MG  TID  PO
     Route: 048
     Dates: start: 20071126, end: 20071207

REACTIONS (4)
  - ASTHENIA [None]
  - CONFUSIONAL STATE [None]
  - FALL [None]
  - MENTAL STATUS CHANGES [None]
